FAERS Safety Report 7470595-2 (Version None)
Quarter: 2011Q2

REPORT INFORMATION
  Report Type: 
  Country: None (occurrence: None)
  Receive Date: 20110510
  Receipt Date: 20110425
  Transmission Date: 20111010
  Serious: Yes (Other)
  Sender: FDA-Public Use
  Company Number: US-JNJFOC-20110412576

PATIENT
  Sex: Female

DRUGS (4)
  1. SYNTHROID [Concomitant]
     Indication: PRODUCT USED FOR UNKNOWN INDICATION
     Route: 065
  2. BENADRYL [Suspect]
     Indication: FEELING OF RELAXATION
     Route: 042
  3. BENADRYL [Suspect]
     Route: 042
  4. BACLOFEN [Interacting]
     Indication: MUSCULOSKELETAL STIFFNESS
     Route: 048

REACTIONS (4)
  - DRUG INTERACTION [None]
  - THROAT TIGHTNESS [None]
  - SENSATION OF FOREIGN BODY [None]
  - ERYTHEMA [None]
